FAERS Safety Report 6035596-X (Version None)
Quarter: 2009Q1

REPORT INFORMATION
  Report Type: 
  Country: None (occurrence: None)
  Receive Date: 20090112
  Receipt Date: 20090112
  Transmission Date: 20090719
  Serious: No
  Sender: FDA-Public Use
  Company Number: None

PATIENT
  Age: 67 Year
  Sex: Male
  Weight: 97.52 kg

DRUGS (2)
  1. HEPARIN [Suspect]
     Indication: DEEP VEIN THROMBOSIS
     Dosage: 25000 UNITS IV
     Route: 042
     Dates: start: 20081121, end: 20081126
  2. HEPARIN [Suspect]
     Indication: THROMBOSIS PROPHYLAXIS
     Dosage: 25000 UNITS IV
     Route: 042
     Dates: start: 20081121, end: 20081126

REACTIONS (1)
  - THROMBOCYTOPENIA [None]
